FAERS Safety Report 13629580 (Version 2)
Quarter: 2017Q2

REPORT INFORMATION
  Report Type: Report from Study
  Country: US (occurrence: US)
  Receive Date: 20170608
  Receipt Date: 20170614
  Transmission Date: 20170830
  Serious: Yes (Hospitalization, Other)
  Sender: FDA-Public Use
  Company Number: US-ASTRAZENECA-2017SE58677

PATIENT
  Age: 53 Year
  Sex: Male
  Weight: 99.3 kg

DRUGS (5)
  1. OLAPARIB [Suspect]
     Active Substance: OLAPARIB
     Indication: PROSTATE CANCER
     Dosage: EVERY 12 HOURS
     Route: 048
     Dates: start: 20170503, end: 20170529
  2. OMEPRAZOLE. [Concomitant]
     Active Substance: OMEPRAZOLE
     Route: 065
  3. MEDI4736 [Suspect]
     Active Substance: DURVALUMAB
     Indication: PROSTATE CANCER
     Dosage: ONCE A MONTH
     Route: 042
     Dates: start: 20170503, end: 20170503
  4. GOSERELIN [Concomitant]
     Active Substance: GOSERELIN
     Dosage: 10.8MG EVERY 3 MONTH
     Route: 065
  5. CALCIUM PLUS VITAMIN D [Concomitant]
     Active Substance: CALCIUM\VITAMIN D
     Route: 065

REACTIONS (2)
  - Colitis [Unknown]
  - Hyperglycaemia [Unknown]

NARRATIVE: CASE EVENT DATE: 20170530
